FAERS Safety Report 25578511 (Version 1)
Quarter: 2025Q3

REPORT INFORMATION
  Report Type: Report from Study
  Country: US (occurrence: US)
  Receive Date: 20250718
  Receipt Date: 20250718
  Transmission Date: 20251020
  Serious: No
  Sender: MALLINCKRODT
  Company Number: US-MALLINCKRODT-MNK202503942

PATIENT
  Sex: Female

DRUGS (1)
  1. CORTICOTROPIN [Suspect]
     Active Substance: CORTICOTROPIN
     Indication: Rheumatoid arthritis

REACTIONS (6)
  - Tremor [Unknown]
  - Alopecia [Unknown]
  - Abdominal pain [Unknown]
  - Feeling abnormal [Unknown]
  - Pyrexia [Unknown]
  - Joint swelling [Unknown]
